FAERS Safety Report 9214508 (Version 1)
Quarter: 2013Q2

REPORT INFORMATION
  Report Type: Report from Study
  Country: US (occurrence: US)
  Receive Date: 20130405
  Receipt Date: 20130405
  Transmission Date: 20140414
  Serious: Yes (Other)
  Sender: FDA-Public Use
  Company Number: US-ABBOTT-13P-163-1070198-00

PATIENT
  Sex: Female
  Weight: 64.01 kg

DRUGS (11)
  1. HUMIRA [Suspect]
     Indication: RHEUMATOID ARTHRITIS
     Dates: start: 2011
  2. SYNTHROID [Concomitant]
     Indication: HYPOTHYROIDISM
  3. LEFLUNOMIDE [Concomitant]
     Indication: RHEUMATOID ARTHRITIS
  4. PREDNISONE [Concomitant]
     Indication: RHEUMATOID ARTHRITIS
  5. PRILOSEC [Concomitant]
     Indication: GASTRIC DISORDER
  6. PRILOSEC [Concomitant]
     Indication: PROPHYLAXIS
  7. TRAMADOL [Concomitant]
     Indication: RHEUMATOID ARTHRITIS
  8. HYDROCODONE [Concomitant]
     Indication: RHEUMATOID ARTHRITIS
  9. NUVIGIL [Concomitant]
     Indication: RHEUMATOID ARTHRITIS
  10. LIDODERM PATCHES [Concomitant]
     Indication: SPONDYLITIS
  11. BOTOX [Concomitant]
     Indication: NECK PAIN

REACTIONS (8)
  - Swelling face [Recovered/Resolved]
  - Blood pressure increased [Not Recovered/Not Resolved]
  - Wound infection staphylococcal [Recovered/Resolved]
  - Onychomycosis [Not Recovered/Not Resolved]
  - Onychoclasis [Not Recovered/Not Resolved]
  - Skin fissures [Not Recovered/Not Resolved]
  - Nasopharyngitis [Recovered/Resolved]
  - Cough [Recovered/Resolved]
